FAERS Safety Report 8890204 (Version 2)
Quarter: 2013Q1

REPORT INFORMATION
  Report Type: Spontaneous
  Country: US (occurrence: US)
  Receive Date: 20121107
  Receipt Date: 20130116
  Transmission Date: 20140127
  Serious: Yes (Hospitalization)
  Sender: FDA-Public Use
  Company Number: US-PFIZER INC-2012276293

PATIENT
  Age: 50 Year
  Sex: Male
  Weight: 100.68 kg

DRUGS (1)
  1. VIAGRA [Suspect]
     Indication: ERECTILE DYSFUNCTION
     Dosage: 50 MG, AS NEEDED
     Dates: end: 201204

REACTIONS (2)
  - Malaise [Recovered/Resolved]
  - Serositis [Recovered/Resolved]
